FAERS Safety Report 5007002-5 (Version None)
Quarter: 2006Q2

REPORT INFORMATION
  Report Type: 
  Country: None (occurrence: None)
  Receive Date: 20060517
  Receipt Date: 20060510
  Transmission Date: 20061013
  Serious: Yes (Other)
  Sender: FDA-Public Use
  Company Number: 220474

PATIENT
  Age: 75 Year
  Sex: Female
  Weight: 88 kg

DRUGS (14)
  1. CATHFLO ACTIVASE [Suspect]
     Indication: CATHETER RELATED COMPLICATION
     Dosage: 2 MG; 2 MG, IV BOLUS; 2 MG; 2 MG, INTRAVENOUS
     Dates: start: 20050914, end: 20051107
  2. CATHFLO ACTIVASE [Suspect]
     Indication: CATHETER RELATED COMPLICATION
     Dosage: 2 MG; 2 MG, IV BOLUS; 2 MG; 2 MG, INTRAVENOUS
     Dates: start: 20051109, end: 20051202
  3. CATHFLO ACTIVASE [Suspect]
     Indication: CATHETER RELATED COMPLICATION
     Dosage: 2 MG; 2 MG, IV BOLUS; 2 MG; 2 MG, INTRAVENOUS
     Dates: start: 20051207, end: 20051207
  4. CATHFLO ACTIVASE [Suspect]
     Indication: CATHETER RELATED COMPLICATION
     Dosage: 2 MG; 2 MG, IV BOLUS; 2 MG; 2 MG, INTRAVENOUS
     Dates: start: 20051212
  5. WARFARIN SODIUM [Suspect]
     Dosage: TABLET, QD, ORAL
     Route: 048
  6. CALCIUM CARBONATE (CALCIUM CARBONATE) [Concomitant]
  7. DILANTIN [Concomitant]
  8. ZOCOR [Concomitant]
  9. LOSEC (OMEPRAZOLE) [Concomitant]
  10. CLOBAZAM (CLOBAZAM) [Concomitant]
  11. ATACAND [Concomitant]
  12. TYLENOL #3 (CANADA) (ACETAMINOPHEN, CAFFEINE, CODEINE PHOSPHATE) [Concomitant]
  13. REGLAN [Concomitant]
  14. SENOKOT [Concomitant]

REACTIONS (7)
  - CATHETER RELATED COMPLICATION [None]
  - COAGULOPATHY [None]
  - CONVULSION [None]
  - DRUG LEVEL BELOW THERAPEUTIC [None]
  - LOSS OF CONSCIOUSNESS [None]
  - PRURITUS GENERALISED [None]
  - REFUSAL OF TREATMENT BY PATIENT [None]
